FAERS Safety Report 4757674-5 (Version None)
Quarter: 2005Q3

REPORT INFORMATION
  Report Type: 
  Country: None (occurrence: None)
  Receive Date: 20050831
  Receipt Date: 20050816
  Transmission Date: 20060218
  Serious: Yes (Life-Threatening)
  Sender: FDA-Public Use
  Company Number: JP-GLAXOSMITHKLINE-B0391158A

PATIENT
  Age: 67 Year
  Sex: Female
  Weight: 44 kg

DRUGS (10)
  1. MODACIN [Suspect]
     Indication: INFECTION
     Dosage: 1G PER DAY
     Route: 042
     Dates: start: 20050803, end: 20050806
  2. LASIX [Concomitant]
     Dosage: 40MG TWICE PER DAY
     Route: 048
     Dates: end: 20050811
  3. TANKARU [Concomitant]
     Dosage: 500MG THREE TIMES PER DAY
     Route: 048
     Dates: end: 20050811
  4. FRANDOL [Concomitant]
     Dosage: 20MG TWICE PER DAY
     Route: 048
  5. RENAGEL [Concomitant]
     Dosage: 250MG SIX TIMES PER DAY
     Route: 048
     Dates: end: 20050811
  6. FOLIAMIN [Concomitant]
     Dosage: 5MG PER DAY
     Route: 048
     Dates: end: 20050811
  7. ARTIST [Concomitant]
     Indication: HYPERTENSION
     Dosage: 5MG PER DAY
     Route: 048
     Dates: end: 20050811
  8. CYANOCOBALAMIN [Concomitant]
     Dosage: 500MCG PER DAY
     Route: 048
     Dates: end: 20050811
  9. THYRADIN S [Concomitant]
     Indication: HYPOTHYROIDISM
     Dosage: 150MCG PER DAY
     Route: 048
     Dates: end: 20050811
  10. MEROPEN [Concomitant]
     Indication: INFECTION
     Dosage: .5G PER DAY
     Route: 042
     Dates: end: 20050802

REACTIONS (7)
  - DEMYELINATION [None]
  - DEPRESSED LEVEL OF CONSCIOUSNESS [None]
  - GLOSSOPTOSIS [None]
  - MOUTH BREATHING [None]
  - PLASMA CELL COUNT [None]
  - PROTEIN TOTAL INCREASED [None]
  - PULSE ABNORMAL [None]
